FAERS Safety Report 7890006-2 (Version None)
Quarter: 2011Q4

REPORT INFORMATION
  Report Type: 
  Country: None (occurrence: None)
  Receive Date: 20111103
  Receipt Date: 20111025
  Transmission Date: 20120403
  Serious: Yes (Other)
  Sender: FDA-Public Use
  Company Number: PHHY2011IT91226

PATIENT
  Age: 70 Year
  Sex: Female

DRUGS (2)
  1. TEGRETOL [Suspect]
  2. CELEBREX [Interacting]

REACTIONS (2)
  - ANAPHYLACTIC SHOCK [None]
  - DRUG INTERACTION [None]
